FAERS Safety Report 4682693-7 (Version None)
Quarter: 2005Q2

REPORT INFORMATION
  Report Type: 
  Country: None (occurrence: None)
  Receive Date: 20050606
  Receipt Date: 20050523
  Transmission Date: 20051028
  Serious: Yes (Other)
  Sender: FDA-Public Use
  Company Number: US-GLAXOSMITHKLINE-A0559676A

PATIENT
  Age: 78 Year
  Sex: Female

DRUGS (2)
  1. ECOTRIN ADULT LOW STRENGTH TABLETS [Suspect]
     Route: 048
     Dates: start: 20050401, end: 20050501
  2. NAPROSYN [Concomitant]

REACTIONS (2)
  - MUSCLE SPASMS [None]
  - SYNCOPE [None]
